FAERS Safety Report 6881362-2 (Version None)
Quarter: 2010Q3

REPORT INFORMATION
  Report Type: 
  Country: None (occurrence: None)
  Receive Date: 20100728
  Receipt Date: 20100728
  Transmission Date: 20110219
  Serious: Yes (Hospitalization)
  Sender: FDA-Public Use
  Company Number: None

PATIENT
  Sex: Male
  Weight: 93.3 kg

DRUGS (15)
  1. TEMODAR [Suspect]
     Indication: GLIOBLASTOMA MULTIFORME
     Dosage: 100MG/M2 DAILY ORAL
     Route: 048
     Dates: start: 20100309, end: 20100329
  2. TEMODAR [Suspect]
     Indication: GLIOBLASTOMA MULTIFORME
     Dosage: 100MG/M2 DAILY ORAL
     Route: 048
     Dates: start: 20100406, end: 20100426
  3. TEMODAR [Suspect]
     Indication: GLIOBLASTOMA MULTIFORME
     Dosage: 100MG/M2 DAILY ORAL
     Route: 048
     Dates: start: 20100512, end: 20100601
  4. BACTRIM [Concomitant]
  5. DEXAMETHASONE [Concomitant]
  6. ZOFRAN [Concomitant]
  7. ACETAMINOPHEN [Concomitant]
  8. PROPRANOLOL [Concomitant]
  9. OMEPRAZOLE [Concomitant]
  10. RITALIN [Concomitant]
  11. NYSTATIN [Concomitant]
  12. NORTRIPTYLINE [Concomitant]
  13. KEPPRA [Concomitant]
  14. COLACE [Concomitant]
  15. ATIVAN [Concomitant]

REACTIONS (18)
  - ABDOMINAL DISCOMFORT [None]
  - ALANINE AMINOTRANSFERASE INCREASED [None]
  - CHEST PAIN [None]
  - DECREASED APPETITE [None]
  - DIARRHOEA [None]
  - DRUG DOSE OMISSION [None]
  - DYSPNOEA [None]
  - ELECTROCARDIOGRAM QT PROLONGED [None]
  - HEADACHE [None]
  - HYPERGLYCAEMIA [None]
  - HYPOKALAEMIA [None]
  - MICROCYTIC ANAEMIA [None]
  - NAUSEA [None]
  - ORAL CANDIDIASIS [None]
  - OXYGEN SATURATION DECREASED [None]
  - PULMONARY EMBOLISM [None]
  - TRANSAMINASES INCREASED [None]
  - VOMITING [None]
